FAERS Safety Report 9026990 (Version 1)
Quarter: 2013Q1

REPORT INFORMATION
  Report Type: Spontaneous
  Country: CA (occurrence: CA)
  Receive Date: 20130123
  Receipt Date: 20130123
  Transmission Date: 20140127
  Serious: Yes (Death)
  Sender: FDA-Public Use
  Company Number: CA-ELI_LILLY_AND_COMPANY-CA201301003745

PATIENT
  Age: 64 Year
  Sex: Female

DRUGS (12)
  1. FORTEO [Suspect]
     Indication: OSTEOPOROSIS
     Dosage: 20 UG, QD
     Route: 058
     Dates: start: 20121012, end: 20121212
  2. NEUROTIN                           /00949202/ [Concomitant]
     Dosage: UNK, UNKNOWN
     Route: 065
  3. LIORESAL [Concomitant]
     Dosage: UNK, UNKNOWN
     Route: 065
  4. LIPITOR [Concomitant]
     Dosage: UNK, UNKNOWN
     Route: 065
  5. CALCIUM [Concomitant]
     Dosage: UNK, UNKNOWN
     Route: 065
  6. VITAMIN D [Concomitant]
     Dosage: UNK, UNKNOWN
     Route: 065
  7. LOSEC [Concomitant]
     Dosage: UNK, UNKNOWN
     Route: 065
  8. CODEINE [Concomitant]
     Dosage: UNK, UNKNOWN
     Route: 065
  9. LAX-A-DAY [Concomitant]
     Dosage: UNK, UNKNOWN
     Route: 065
  10. VALIUM [Concomitant]
     Dosage: UNK, UNKNOWN
     Route: 065
  11. GRAVOL [Concomitant]
     Dosage: UNK, UNKNOWN
     Route: 065
  12. FIORINAL [Concomitant]
     Dosage: UNK, UNKNOWN
     Route: 065

REACTIONS (2)
  - Death [Fatal]
  - Fatigue [Unknown]
